FAERS Safety Report 8336268-9 (Version None)
Quarter: 2012Q2

REPORT INFORMATION
  Report Type: 
  Country: None (occurrence: None)
  Receive Date: 20120501
  Receipt Date: 20120417
  Transmission Date: 20120825
  Serious: Yes (Other)
  Sender: FDA-Public Use
  Company Number: MC201200254

PATIENT
  Age: 73 Year
  Sex: Female

DRUGS (2)
  1. ANGIOMAX [Suspect]
  2. ANGIOMAX [Suspect]
     Indication: PERCUTANEOUS CORONARY INTERVENTION
     Dosage: , INTRAVENOUS
     Route: 042

REACTIONS (3)
  - PROCEDURAL SITE REACTION [None]
  - HAEMORRHAGE [None]
  - BLOOD CREATININE INCREASED [None]
